FAERS Safety Report 25415158 (Version 1)
Quarter: 2025Q2

REPORT INFORMATION
  Report Type: Report from Study
  Country: US (occurrence: US)
  Receive Date: 20250609
  Receipt Date: 20250609
  Transmission Date: 20250717
  Serious: Yes (Other)
  Sender: ABBVIE
  Company Number: US-ABBVIE-6310833

PATIENT
  Age: 61 Year
  Sex: Male

DRUGS (1)
  1. VYALEV [Suspect]
     Active Substance: FOSCARBIDOPA\FOSLEVODOPA
     Indication: Parkinson^s disease
     Route: 058
     Dates: start: 20250108

REACTIONS (5)
  - Osteonecrosis [Recovering/Resolving]
  - Arthritis [Recovering/Resolving]
  - Fall [Unknown]
  - Lower limb fracture [Unknown]
  - Device material issue [Unknown]

NARRATIVE: CASE EVENT DATE: 20250101
